FAERS Safety Report 4362369-6 (Version None)
Quarter: 2004Q2

REPORT INFORMATION
  Report Type: 
  Country: None (occurrence: None)
  Receive Date: 20040521
  Receipt Date: 20040426
  Transmission Date: 20050107
  Serious: Yes (Hospitalization, Other)
  Sender: FDA-Public Use
  Company Number: US-MERCK-0405USA00950

PATIENT
  Age: 64 Year
  Sex: Male

DRUGS (16)
  1. [THERAPY UNSPECIFIED] [Concomitant]
     Route: 065
     Dates: start: 20040401
  2. ALDESLEUKIN [Concomitant]
     Route: 042
     Dates: start: 20040401
  3. ALDESLEUKIN [Concomitant]
     Route: 042
     Dates: start: 20040401
  4. ALDESLEUKIN [Concomitant]
     Route: 042
     Dates: start: 20040401
  5. ALDESLEUKIN [Concomitant]
     Route: 042
     Dates: start: 20040401
  6. ALDESLEUKIN [Concomitant]
     Route: 065
     Dates: start: 20040401
  7. EMEND [Suspect]
     Indication: PROPHYLAXIS OF NAUSEA AND VOMITING
     Route: 048
     Dates: start: 20040401
  8. EMEND [Suspect]
     Route: 048
     Dates: start: 20040401
  9. EMEND [Suspect]
     Route: 048
     Dates: start: 20040401
  10. CISPLATIN [Concomitant]
     Route: 042
     Dates: start: 20040401
  11. DACARBAZINE [Concomitant]
     Route: 042
     Dates: start: 20040401
  12. INTERFERON ALFA [Concomitant]
     Route: 051
     Dates: start: 20040401
  13. ATIVAN [Concomitant]
     Indication: NAUSEA
     Route: 065
  14. ZOFRAN [Concomitant]
     Route: 042
  15. PROTONIX [Concomitant]
     Route: 065
  16. VINBLASTINE SULFATE [Suspect]
     Route: 042
     Dates: start: 20040401

REACTIONS (7)
  - BACTERIAL SEPSIS [None]
  - BLOOD CULTURE POSITIVE [None]
  - DRUG INTERACTION [None]
  - GROIN ABSCESS [None]
  - PANCYTOPENIA [None]
  - SEPSIS [None]
  - STREPTOCOCCAL INFECTION [None]
